FAERS Safety Report 12286696 (Version 1)
Quarter: 2016Q2

REPORT INFORMATION
  Report Type: Report from Study
  Country: BR (occurrence: BR)
  Receive Date: 20160420
  Receipt Date: 20160420
  Transmission Date: 20160815
  Serious: Yes (Other)
  Sender: FDA-Public Use
  Company Number: BR-ABBVIE-16K-020-1605857-00

PATIENT
  Age: 43 Year
  Sex: Female
  Weight: 94 kg

DRUGS (13)
  1. DULOXETINA [Concomitant]
     Active Substance: DULOXETINE
     Indication: SPONDYLITIS
     Route: 048
     Dates: start: 2015, end: 201603
  2. LOSARTAN. [Concomitant]
     Active Substance: LOSARTAN
     Indication: HYPERTENSION
     Route: 048
     Dates: start: 2012
  3. HUMIRA [Suspect]
     Active Substance: ADALIMUMAB
     Indication: ANKYLOSING SPONDYLITIS
     Route: 058
     Dates: start: 20150710
  4. TRAMADOL. [Concomitant]
     Active Substance: TRAMADOL
     Indication: SPONDYLITIS
     Route: 048
     Dates: start: 2013
  5. HUMIRA [Suspect]
     Active Substance: ADALIMUMAB
     Route: 058
     Dates: start: 20160408
  6. AMLODIPINE [Concomitant]
     Active Substance: AMLODIPINE BESYLATE
     Indication: HYPERTENSION
     Route: 048
     Dates: start: 2015
  7. PREGABALIN. [Concomitant]
     Active Substance: PREGABALIN
     Indication: FIBROMYALGIA
     Route: 048
     Dates: start: 2015, end: 201603
  8. DORFLEX [Concomitant]
     Active Substance: CAFFEINE\DIPYRONE\ORPHENADRINE
     Indication: PAIN
     Route: 048
     Dates: start: 2014
  9. SULFASALAZINE. [Concomitant]
     Active Substance: SULFASALAZINE
     Indication: SPONDYLITIS
     Route: 048
     Dates: start: 2014
  10. CARBAMAZEPINE. [Concomitant]
     Active Substance: CARBAMAZEPINE
     Indication: SEIZURE
     Route: 048
     Dates: start: 2014
  11. PANTOPRAZOLE [Concomitant]
     Active Substance: PANTOPRAZOLE SODIUM
     Indication: GASTRIC DISORDER
     Route: 048
     Dates: start: 2014
  12. CLONAZEPAM. [Concomitant]
     Active Substance: CLONAZEPAM
     Indication: SPONDYLITIS
     Route: 048
     Dates: start: 2011
  13. NORTRIPTYLINE [Concomitant]
     Active Substance: NORTRIPTYLINE
     Indication: SPONDYLITIS
     Dosage: FORM STRENGTH: 20MG/12MG
     Route: 048
     Dates: start: 2014

REACTIONS (12)
  - Back pain [Recovering/Resolving]
  - Myalgia [Recovering/Resolving]
  - Dyspnoea [Recovering/Resolving]
  - Psoriasis [Recovering/Resolving]
  - Pain in extremity [Recovering/Resolving]
  - Neuralgia [Recovering/Resolving]
  - Fatigue [Recovered/Resolved]
  - Pain [Recovered/Resolved]
  - Pulmonary hypertension [Recovering/Resolving]
  - Mobility decreased [Recovering/Resolving]
  - Arthralgia [Recovering/Resolving]
  - Amnesia [Not Recovered/Not Resolved]

NARRATIVE: CASE EVENT DATE: 201512
